FAERS Safety Report 9516203 (Version 1)
Quarter: 2013Q1

REPORT INFORMATION
  Report Type: Spontaneous
  Country: US (occurrence: None)
  Receive Date: 20130305
  Receipt Date: 20130305
  Transmission Date: 20140127
  Serious: Yes (Hospitalization, Other)
  Sender: FDA-Public Use
  Company Number: 163-21880-12114119

PATIENT
  Age: 61 Year
  Sex: Male

DRUGS (9)
  1. REVLIMID (LENALIDOMIDE) (25 MILLIGRAM, CAPSULES) [Suspect]
     Indication: PLASMA CELL MYELOMA
     Dosage: 25 MG, 21 IN 21 D, PO
     Dates: start: 20121102
  2. ASA (ACETYLSALICYLIC ACID) (UNKNOWN) [Concomitant]
  3. LISINOPRIL (LISINOPRIL) (UNKNOWN) [Concomitant]
  4. OXYCODONE (OXYCODONE) (UNKNOWN) (OXYCODONE) [Concomitant]
  5. ZETIA (EZETIMIBE) (UNKNOWN) [Concomitant]
  6. NIACIN (NICOTINIC ACID) (UNKNOWN) [Concomitant]
  7. GLUCOSAMINE (GLUCOSAMINE) (UNKNOWN) [Concomitant]
  8. DEXAMETHASONE (DEXAMETHASONE) (UNKNOWN) [Concomitant]
  9. BIAXIN (CLARITHROMYCINE) (UNKNOWN) [Concomitant]

REACTIONS (2)
  - Fatigue [None]
  - Confusional state [None]
